FAERS Safety Report 8436577-9 (Version None)
Quarter: 2012Q2

REPORT INFORMATION
  Report Type: 
  Country: None (occurrence: None)
  Receive Date: 20120608
  Receipt Date: 20120530
  Transmission Date: 20120825
  Serious: No
  Sender: FDA-Public Use
  Company Number: DKLU1081569

PATIENT
  Age: 38 Year
  Sex: Female

DRUGS (1)
  1. CLOBAZAM [Suspect]
     Indication: CONVULSION
     Dosage: 5 MG MILLIGRAM(S), 2 IN 1 D, ORAL
     Route: 048
     Dates: start: 20120405, end: 20120509

REACTIONS (4)
  - DYSPHAGIA [None]
  - LETHARGY [None]
  - RESPIRATORY RATE DECREASED [None]
  - FEEDING DISORDER [None]
